FAERS Safety Report 24207431 (Version 1)
Quarter: 2024Q3

REPORT INFORMATION
  Report Type: Spontaneous
  Country: CN (occurrence: CN)
  Receive Date: 20240814
  Receipt Date: 20240814
  Transmission Date: 20241016
  Serious: Yes (Other)
  Sender: ALCON
  Company Number: CN-ALCON LABORATORIES-ALC2024CN003737

PATIENT
  Age: 40 Year
  Sex: Female

DRUGS (1)
  1. FLUORESCITE [Suspect]
     Active Substance: FLUORESCEIN SODIUM
     Indication: Skin test
     Dosage: 0.05 ML
     Route: 058
     Dates: start: 20240725

REACTIONS (5)
  - Altered state of consciousness [Unknown]
  - Dizziness [Unknown]
  - Hyperhidrosis [Unknown]
  - Pallor [Unknown]
  - Eye contusion [Unknown]

NARRATIVE: CASE EVENT DATE: 20240725
